FAERS Safety Report 4854925-3 (Version None)
Quarter: 2005Q4

REPORT INFORMATION
  Report Type: 
  Country: None (occurrence: None)
  Receive Date: 20051212
  Receipt Date: 20051125
  Transmission Date: 20060501
  Serious: Yes (Other)
  Sender: FDA-Public Use
  Company Number: FRWYE190729NOV05

PATIENT
  Sex: Male

DRUGS (1)
  1. REFACTO [Suspect]
     Indication: FACTOR VIII DEFICIENCY
     Dosage: 50 IU/KG 1X PER 3 DAY INTRAVENOUS; SEE IMAGE
     Route: 042

REACTIONS (3)
  - COAGULATION FACTOR VIII LEVEL DECREASED [None]
  - DRUG INEFFECTIVE [None]
  - HAEMATOMA [None]
